FAERS Safety Report 6982559-3 (Version None)
Quarter: 2010Q3

REPORT INFORMATION
  Report Type: 
  Country: None (occurrence: None)
  Receive Date: 20100909
  Receipt Date: 20100823
  Transmission Date: 20110219
  Serious: Yes (Other)
  Sender: FDA-Public Use
  Company Number: 20100402

PATIENT
  Age: 59 Year
  Sex: Male

DRUGS (7)
  1. METHYLENE BLUE INJECTION, USP (0301-10) 1% [Suspect]
     Dosage: 700 MG INTRAVENOUS
     Route: 042
  2. RINGER'S LACTATE SOLUTION [Concomitant]
  3. SUCCINYLCHOLINE CHLORIDE [Concomitant]
  4. NITROUS OXIDE [Concomitant]
  5. SEVOFLURANE [Concomitant]
  6. PROPOFOL [Concomitant]
  7. VECURONIUM BROMIDE [Concomitant]

REACTIONS (2)
  - APHASIA [None]
  - CONFUSION POSTOPERATIVE [None]
